FAERS Safety Report 12878329 (Version 6)
Quarter: 2019Q1

REPORT INFORMATION
  Report Type: Spontaneous
  Country: US (occurrence: US)
  Receive Date: 20161024
  Receipt Date: 20190214
  Transmission Date: 20190417
  Serious: Yes (Hospitalization, Other)
  Sender: FDA-Public Use
  Company Number: US-PFIZER INC-2016491574

PATIENT
  Age: 51 Year
  Sex: Male
  Weight: 109 kg

DRUGS (12)
  1. MAGNESIUM OXIDE. [Concomitant]
     Active Substance: MAGNESIUM OXIDE
     Indication: MUSCLE SPASMS
     Dosage: 400 MG, DAILY
     Route: 048
     Dates: start: 2010
  2. REVATIO [Suspect]
     Active Substance: SILDENAFIL CITRATE
     Indication: PULMONARY HYPERTENSION
     Dosage: 40 MG, 3X/DAY (20MG 2 TABLETS 3X/DAY)
     Route: 048
     Dates: start: 2014
  3. LISINOPRIL. [Concomitant]
     Active Substance: LISINOPRIL
     Indication: PERICARDIAL EFFUSION
     Dosage: 20 MG, DAILY
     Route: 048
     Dates: start: 2010
  4. CLONIDINE. [Concomitant]
     Active Substance: CLONIDINE
     Indication: HYPERTENSION
     Dosage: 0.1 MG, 2X/DAY
     Route: 048
     Dates: start: 2010
  5. FUROSEMIDE. [Concomitant]
     Active Substance: FUROSEMIDE
     Indication: DIURETIC THERAPY
     Dosage: 20 MG, 2X/DAY
     Route: 048
     Dates: start: 2010
  6. LACTULOSE. [Concomitant]
     Active Substance: LACTULOSE
     Indication: AMMONIA ABNORMAL
     Dosage: 30 ML, 4X/DAY
     Route: 048
     Dates: start: 2010
  7. AMLODIPINE [Concomitant]
     Active Substance: AMLODIPINE BESYLATE
     Dosage: 5 MG, DAILY
     Route: 048
     Dates: start: 2010
  8. PROPANOLOL [Concomitant]
     Active Substance: PROPRANOLOL HYDROCHLORIDE
     Indication: BLOOD PRESSURE ABNORMAL
     Dosage: 80 MG, DAILY
     Route: 048
     Dates: start: 2010
  9. URSODIOL. [Concomitant]
     Active Substance: URSODIOL
     Indication: CHOLELITHIASIS
     Dosage: 300 MG, 3X/DAY
     Route: 048
     Dates: start: 2010
  10. XIFAXAN [Concomitant]
     Active Substance: RIFAXIMIN
     Indication: GASTROINTESTINAL INFECTION
     Dosage: 550 MG, 2X/DAY
     Route: 048
     Dates: start: 2010
  11. REVATIO [Suspect]
     Active Substance: SILDENAFIL CITRATE
     Dosage: 40 MG, 3X/DAY (THREE TIMES DAILY WHILE AWAKE)
     Route: 048
     Dates: start: 20181211
  12. SPIRONOLACTONE. [Concomitant]
     Active Substance: SPIRONOLACTONE
     Dosage: 50 MG, 2X/DAY
     Route: 048
     Dates: start: 2010

REACTIONS (3)
  - Prescribed overdose [Unknown]
  - Thrombosis [Not Recovered/Not Resolved]
  - Salivary gland disorder [Not Recovered/Not Resolved]

NARRATIVE: CASE EVENT DATE: 2014
